FAERS Safety Report 6742774-0 (Version None)
Quarter: 2010Q2

REPORT INFORMATION
  Report Type: 
  Country: None (occurrence: None)
  Receive Date: 20100525
  Receipt Date: 20100513
  Transmission Date: 20101027
  Serious: Yes (Hospitalization)
  Sender: FDA-Public Use
  Company Number: PI-04717

PATIENT
  Sex: Female

DRUGS (2)
  1. CHLORAPREP [Suspect]
     Indication: INFECTION PROPHYLAXIS
     Dosage: 26ML,ONCE,TOPICAL
     Route: 061
     Dates: start: 20100208
  2. CHLORAPREP [Suspect]
     Indication: PREOPERATIVE CARE
     Dosage: 26ML,ONCE,TOPICAL
     Route: 061
     Dates: start: 20100208

REACTIONS (2)
  - INCISION SITE INFECTION [None]
  - SKIN IRRITATION [None]
